FAERS Safety Report 6543658-3 (Version None)
Quarter: 2010Q1

REPORT INFORMATION
  Report Type: 
  Country: None (occurrence: None)
  Receive Date: 20100120
  Receipt Date: 20100105
  Transmission Date: 20100710
  Serious: Yes (Hospitalization)
  Sender: FDA-Public Use
  Company Number: AU-GENENTECH-296890

PATIENT
  Sex: Female

DRUGS (1)
  1. LUCENTIS [Suspect]
     Indication: MACULAR DEGENERATION
     Dosage: 0.05 ML, UNK
     Dates: start: 20080801

REACTIONS (2)
  - DRUG INEFFECTIVE [None]
  - HIP FRACTURE [None]
